FAERS Safety Report 6425503-X (Version None)
Quarter: 2009Q4

REPORT INFORMATION
  Report Type: 
  Country: None (occurrence: None)
  Receive Date: 20091103
  Receipt Date: 20091026
  Transmission Date: 20100525
  Serious: Yes (Hospitalization, Congenital Anomaly)
  Sender: FDA-Public Use
  Company Number: DE-WYE-G04713209

PATIENT
  Sex: Male

DRUGS (1)
  1. VENLAFAXINE HCL [Suspect]
     Dosage: UNKNOWN
     Route: 064
     Dates: end: 20090101

REACTIONS (3)
  - DRUG EXPOSURE DURING PREGNANCY [None]
  - HYPOVENTILATION NEONATAL [None]
  - INFANTILE APNOEIC ATTACK [None]
